FAERS Safety Report 5006038-8 (Version None)
Quarter: 2006Q1

REPORT INFORMATION
  Report Type: 
  Country: None (occurrence: None)
  Receive Date: 20060320
  Receipt Date: 20050124
  Transmission Date: 20060701
  Serious: Yes (Other)
  Sender: FDA-Public Use
  Company Number: 2005-01-1728

PATIENT
  Age: 30 Year
  Sex: Female

DRUGS (5)
  1. REBETOL [Suspect]
     Dosage: 800 MG QD ORAL
     Route: 048
     Dates: start: 20050110, end: 20050124
  2. PEG-INTRON [Suspect]
     Dosage: 120 MCG QW SUBCUTANEOUS
     Route: 058
     Dates: start: 20050110, end: 20050124
  3. PAXIL [Concomitant]
  4. TYLENOL (CAPLET) [Concomitant]
  5. ULTRACET (TRAMADOL  HYDROCHLORIDE/ACETAMINOPHEN) [Concomitant]

REACTIONS (2)
  - ABORTION SPONTANEOUS [None]
  - DRUG EXPOSURE DURING PREGNANCY [None]
